FAERS Safety Report 8207170-8 (Version None)
Quarter: 2012Q1

REPORT INFORMATION
  Report Type: 
  Country: None (occurrence: None)
  Receive Date: 20120314
  Receipt Date: 20120306
  Transmission Date: 20120608
  Serious: Yes (Disabling)
  Sender: FDA-Public Use
  Company Number: US-CELGENEUS-163-21880-11090129

PATIENT
  Sex: Male
  Weight: 92.162 kg

DRUGS (1)
  1. REVLIMID [Suspect]
     Indication: MULTIPLE MYELOMA
     Dosage: 15 MILLIGRAM
     Route: 048
     Dates: start: 20110801, end: 20110801

REACTIONS (6)
  - AGITATION [None]
  - CONFUSIONAL STATE [None]
  - TREMOR [None]
  - EXOPHTHALMOS [None]
  - IRRITABILITY [None]
  - MOOD ALTERED [None]
